FAERS Safety Report 23336382 (Version 1)
Quarter: 2023Q4

REPORT INFORMATION
  Report Type: Spontaneous
  Country: BE (occurrence: BE)
  Receive Date: 20231225
  Receipt Date: 20231225
  Transmission Date: 20240109
  Serious: Yes (Death, Other)
  Sender: FDA-Public Use
  Company Number: BE-HALEON-BECH2023EME040691

PATIENT
  Age: 83 Year
  Sex: Female

DRUGS (5)
  1. FLUCLOXACILLIN [Suspect]
     Active Substance: FLUCLOXACILLIN
     Indication: Device related infection
     Dosage: 2 G, 6D
     Route: 065
  2. FLUCLOXACILLIN [Suspect]
     Active Substance: FLUCLOXACILLIN
     Dosage: 2 G, QID
     Route: 065
  3. ACETAMINOPHEN [Suspect]
     Active Substance: ACETAMINOPHEN
     Indication: Analgesic therapy
     Dosage: 1 G, TID
     Route: 065
  4. OXYCODONE [Concomitant]
     Active Substance: OXYCODONE
     Indication: Pain
     Dosage: UNK, IMMEDIATE RELEASE
     Route: 065
  5. RIFAMPIN [Concomitant]
     Active Substance: RIFAMPIN
     Indication: Device related infection
     Dosage: UNK
     Route: 065

REACTIONS (7)
  - Metabolic acidosis [Fatal]
  - Delirium [Fatal]
  - Somnolence [Fatal]
  - General physical health deterioration [Fatal]
  - Hypophagia [Fatal]
  - Renal impairment [Fatal]
  - Leukocytosis [Fatal]
